FAERS Safety Report 8792993 (Version 2)
Quarter: 2012Q4

REPORT INFORMATION
  Report Type: 
  Country: GB (occurrence: GB)
  Receive Date: 20120918
  Receipt Date: 20121005
  Transmission Date: 20130627
  Serious: Yes (Death, Other)
  Sender: FDA-Public Use
  Company Number: GB-B.I. PHARMACEUTICALS,INC./RIDGEFIELD-2012-UK-01215UK

PATIENT
  Age: 73 Year
  Sex: Male
  Weight: 94.6 kg

DRUGS (5)
  1. PRADAXA [Suspect]
     Indication: ATRIAL FIBRILLATION
     Dosage: 300 mg
     Dates: start: 20120620
  2. OMEPRAZOLE [Concomitant]
     Indication: GASTROOESOPHAGEAL REFLUX DISEASE
     Dosage: 20 mg
     Route: 048
     Dates: start: 19980206
  3. TAMSULOSIN MR [Concomitant]
     Indication: PROSTATISM
     Dosage: 400 mg
     Route: 048
     Dates: start: 20111031
  4. BISOPROLOL [Concomitant]
     Indication: ATRIAL FIBRILLATION
     Dosage: 1.25 mg
     Route: 048
     Dates: start: 20111206
  5. DOCUSATE [Concomitant]
     Indication: CONSTIPATION
     Dosage: 200 mg
     Route: 048
     Dates: start: 20050527

REACTIONS (2)
  - Colorectal cancer metastatic [Fatal]
  - Microcytic anaemia [Unknown]
